FAERS Safety Report 7003223-0 (Version None)
Quarter: 2010Q3

REPORT INFORMATION
  Report Type: 
  Country: None (occurrence: None)
  Receive Date: 20100920
  Receipt Date: 20100908
  Transmission Date: 20110219
  Serious: Yes (Hospitalization)
  Sender: FDA-Public Use
  Company Number: FR-ASTRAZENECA-2010SE42519

PATIENT
  Age: 34124 Day
  Sex: Female

DRUGS (4)
  1. NEXIUM [Suspect]
     Route: 048
     Dates: start: 20100823, end: 20100823
  2. ALEPSAL [Suspect]
     Route: 048
     Dates: start: 20100823, end: 20100823
  3. DI-HYDAN [Suspect]
     Route: 048
     Dates: start: 20100823, end: 20100823
  4. URBANYL [Suspect]
     Route: 048
     Dates: start: 20100823, end: 20100823

REACTIONS (3)
  - DEPRESSED LEVEL OF CONSCIOUSNESS [None]
  - DRUG DISPENSING ERROR [None]
  - WRONG DRUG ADMINISTERED [None]
